FAERS Safety Report 15753470 (Version 1)
Quarter: 2018Q4

REPORT INFORMATION
  Report Type: Spontaneous
  Country: US (occurrence: US)
  Receive Date: 20181222
  Receipt Date: 20181222
  Transmission Date: 20190205
  Serious: No
  Sender: FDA-Public Use
  Company Number: US-MALLINCKRODT-T201802759

PATIENT
  Age: 69 Year
  Sex: Male
  Weight: 61 kg

DRUGS (3)
  1. FENTANYL TRANSDERMAL SYSTEM [Suspect]
     Active Substance: FENTANYL
     Indication: PAIN
     Dosage: 50 MCG, EVERY THREE DAYS
     Route: 062
     Dates: start: 20180527, end: 201806
  2. LORAZEPAM. [Suspect]
     Active Substance: LORAZEPAM
     Dosage: 1 MG HALF TABLET TWICE DAILY
     Route: 048
     Dates: start: 2018
  3. LORAZEPAM. [Suspect]
     Active Substance: LORAZEPAM
     Indication: DYSPNOEA
     Dosage: 1 MG, TWICE A DAY
     Route: 048
     Dates: start: 20180615

REACTIONS (4)
  - Dyspnoea [Unknown]
  - Feeling abnormal [Unknown]
  - Influenza [Unknown]
  - Anxiety [Unknown]

NARRATIVE: CASE EVENT DATE: 2018
